FAERS Safety Report 16309405 (Version 1)
Quarter: 2019Q2

REPORT INFORMATION
  Report Type: Spontaneous
  Country: DE (occurrence: DE)
  Receive Date: 20190514
  Receipt Date: 20190514
  Transmission Date: 20190711
  Serious: Yes (Other)
  Sender: FDA-Public Use
  Company Number: DE-BAYER-2019-094684

PATIENT
  Age: 45 Year
  Weight: 70 kg

DRUGS (2)
  1. GADOVIST [Suspect]
     Active Substance: GADOBUTROL
     Indication: NUCLEAR MAGNETIC RESONANCE IMAGING
     Dosage: UNK
     Dates: start: 20190429, end: 20190429
  2. L-THYROXIN [LEVOTHYROXINE] [Concomitant]
     Active Substance: LEVOTHYROXINE SODIUM
     Dosage: 50 ?G

REACTIONS (9)
  - Nausea [None]
  - Somnolence [None]
  - Headache [None]
  - Hyperacusis [None]
  - Facial paralysis [None]
  - Myalgia [None]
  - Delirium [None]
  - Chills [None]
  - Pain [None]

NARRATIVE: CASE EVENT DATE: 20190429
